FAERS Safety Report 7368067 (Version 5)
Quarter: 2012Q4

REPORT INFORMATION
  Report Type: Report from Study
  Country: JP (occurrence: JP)
  Receive Date: 20100427
  Receipt Date: 20120905
  Transmission Date: 20130627
  Serious: Yes (Hospitalization, Other)
  Sender: FDA-Public Use
  Company Number: JP-BAUSCH-2010BL002010

PATIENT
  Age: 45 Year
  Sex: Female

DRUGS (18)
  1. FLUOCINOLONE ACETONIDE INTRAVITREAL IMPLANT (0.5 MG) [Suspect]
     Indication: CHOROIDITIS
     Dosage: Left eye
     Route: 047
     Dates: start: 20061201
  2. FLUOCINOLONE ACETONIDE INTRAVITREAL IMPLANT (0.5 MG) [Suspect]
     Indication: CHOROIDITIS
     Dosage: Left eye
     Route: 047
     Dates: start: 20030221
  3. FLUOCINOLONE ACETONIDE INTRAVITREAL IMPLANT (0.5 MG) [Concomitant]
     Indication: CHOROIDITIS
     Dosage: Right eye
     Route: 047
     Dates: start: 20060818
  4. PREDONINE [Concomitant]
     Route: 048
  5. COLCHICINE [Concomitant]
     Route: 048
  6. BUFFERIN /JPN/ [Concomitant]
     Route: 048
  7. CINAL [Concomitant]
     Route: 048
  8. ALFACALCIDOL [Concomitant]
     Route: 048
  9. LIPITOR [Concomitant]
     Route: 048
  10. TARIVID /SCH/ [Concomitant]
     Route: 047
     Dates: start: 20090419
  11. BAYASPIRIN [Concomitant]
     Route: 048
  12. CARNACULIN [Concomitant]
     Route: 048
  13. TAKEPRON [Concomitant]
     Route: 048
     Dates: start: 20070730
  14. METHYCOBAL [Concomitant]
     Route: 048
  15. ALENDRONATE SODIUM [Concomitant]
     Route: 048
     Dates: start: 20070817
  16. TRAVATAN [Concomitant]
     Route: 047
  17. HYALEIN [Concomitant]
     Route: 047
     Dates: start: 20090205
  18. HYALEIN [Concomitant]
     Route: 047
     Dates: start: 20090205

REACTIONS (3)
  - Lymphoma [Not Recovered/Not Resolved]
  - Condition aggravated [Not Recovered/Not Resolved]
  - Central nervous system lymphoma [Not Recovered/Not Resolved]
